FAERS Safety Report 12316098 (Version 1)
Quarter: 2016Q2

REPORT INFORMATION
  Report Type: Spontaneous
  Country: US (occurrence: US)
  Receive Date: 20160428
  Receipt Date: 20160428
  Transmission Date: 20160815
  Serious: No
  Sender: FDA-Public Use
  Company Number: US-JAZZ-2015-US-012109

PATIENT
  Age: 66 Year
  Sex: Female

DRUGS (28)
  1. BUPROPION. [Concomitant]
     Active Substance: BUPROPION
     Indication: DEPRESSION
     Dosage: UNK
  2. FOLIC ACID. [Concomitant]
     Active Substance: FOLIC ACID
     Indication: PRODUCT USED FOR UNKNOWN INDICATION
     Dosage: UNK
  3. NUVIGIL [Concomitant]
     Active Substance: ARMODAFINIL
     Indication: SOMNOLENCE
     Dosage: UNK
  4. GLYBURIDE. [Concomitant]
     Active Substance: GLYBURIDE
     Indication: DIABETES MELLITUS
  5. GINKGO BILOBA [Concomitant]
     Active Substance: GINKGO
     Indication: MEMORY IMPAIRMENT
     Dosage: UNK
  6. GARCINIA CAMBOGIA COMP [Concomitant]
     Active Substance: DIETARY SUPPLEMENT
     Indication: WEIGHT DECREASED
     Dosage: UNK
  7. BIOTIN [Concomitant]
     Active Substance: BIOTIN
     Indication: SUPPLEMENTATION THERAPY
     Dosage: UNK
  8. RESTASIS [Concomitant]
     Active Substance: CYCLOSPORINE
     Indication: EYE DISORDER
     Dosage: UNK
  9. XYREM [Suspect]
     Active Substance: SODIUM OXYBATE
     Indication: NARCOLEPSY
     Dosage: 2.25 G, BID
     Route: 048
     Dates: start: 200409, end: 200410
  10. XYREM [Suspect]
     Active Substance: SODIUM OXYBATE
     Dosage: 6 G, BID
     Route: 048
     Dates: start: 201011
  11. ESTRADIOL. [Concomitant]
     Active Substance: ESTRADIOL
     Indication: HOT FLUSH
     Dosage: UNK
  12. SIMVASTATIN. [Concomitant]
     Active Substance: SIMVASTATIN
     Indication: BLOOD CHOLESTEROL INCREASED
     Dosage: UNK
  13. VITAMIN B12 [Concomitant]
     Active Substance: CYANOCOBALAMIN
     Indication: SUPPLEMENTATION THERAPY
     Dosage: UNK
  14. XYREM [Suspect]
     Active Substance: SODIUM OXYBATE
     Dosage: 6 G, BID
     Route: 048
     Dates: start: 201110
  15. MECLIZINE [Concomitant]
     Active Substance: MECLIZINE HYDROCHLORIDE
     Indication: VERTIGO
     Dosage: UNK
  16. VITAMINS [Concomitant]
     Active Substance: VITAMINS
     Indication: PRODUCT USED FOR UNKNOWN INDICATION
     Dosage: UNK
  17. CITALOPRAM [Concomitant]
     Active Substance: CITALOPRAM HYDROBROMIDE
     Indication: DEPRESSION
     Dosage: UNK
  18. ISOSORBIDE. [Concomitant]
     Active Substance: ISOSORBIDE
     Indication: CARDIAC DISORDER
     Dosage: UNK
  19. CHROMIUM PICOLINATE [Concomitant]
     Active Substance: CHROMIUM PICOLINATE
     Indication: SUPPLEMENTATION THERAPY
     Dosage: UNK
  20. XYREM [Suspect]
     Active Substance: SODIUM OXYBATE
     Dosage: DOSE ADJUSTMENTS
     Route: 048
  21. AMLODIPINE [Concomitant]
     Active Substance: AMLODIPINE BESYLATE
     Indication: HYPERTENSION
     Dosage: UNK
  22. LASIX [Concomitant]
     Active Substance: FUROSEMIDE
     Indication: SWELLING
     Dosage: UNK
     Dates: start: 20150814
  23. XYREM [Suspect]
     Active Substance: SODIUM OXYBATE
     Dosage: 6 G, BID
     Route: 048
     Dates: start: 200611, end: 2009
  24. KLOR-CON [Concomitant]
     Active Substance: POTASSIUM CHLORIDE
     Indication: MINERAL SUPPLEMENTATION
     Dosage: UNK
     Dates: start: 20121201
  25. PLAQUENIL [Concomitant]
     Active Substance: HYDROXYCHLOROQUINE SULFATE
     Indication: ILL-DEFINED DISORDER
     Dosage: UNK
  26. PRENATAL VITAMINS [Concomitant]
     Active Substance: VITAMINS
     Indication: PRODUCT USED FOR UNKNOWN INDICATION
     Dosage: UNK
  27. OMEPRAZOLE. [Concomitant]
     Active Substance: OMEPRAZOLE
     Indication: GASTROOESOPHAGEAL REFLUX DISEASE
     Dosage: UNK
  28. FISH OIL [Concomitant]
     Active Substance: FISH OIL
     Indication: SUPPLEMENTATION THERAPY
     Dosage: UNK

REACTIONS (3)
  - Inappropriate schedule of drug administration [Unknown]
  - Peripheral swelling [Not Recovered/Not Resolved]
  - Prescribed overdose [Unknown]

NARRATIVE: CASE EVENT DATE: 201507
